FAERS Safety Report 7822905-1 (Version None)
Quarter: 2011Q4

REPORT INFORMATION
  Report Type: 
  Country: None (occurrence: None)
  Receive Date: 20111018
  Receipt Date: 20101230
  Transmission Date: 20120403
  Serious: No
  Sender: FDA-Public Use
  Company Number: US-ASTRAZENECA-2010SE61501

PATIENT
  Age: 72 Year
  Sex: Female

DRUGS (3)
  1. SYMBICORT [Suspect]
     Dosage: 160/4.5 ONE PUFFS QD
     Route: 048
  2. ZYFLO [Concomitant]
  3. MICARDIS [Concomitant]

REACTIONS (2)
  - DRUG DOSE OMISSION [None]
  - BLOOD PRESSURE INCREASED [None]
